FAERS Safety Report 24784088 (Version 1)
Quarter: 2024Q4

REPORT INFORMATION
  Report Type: Spontaneous
  Country: PT (occurrence: PT)
  Receive Date: 20241227
  Receipt Date: 20241227
  Transmission Date: 20250115
  Serious: Yes (Life-Threatening, Hospitalization)
  Sender: MYLAN
  Company Number: PT-MYLANLABS-2024M1116502

PATIENT
  Age: 66 Year
  Sex: Male

DRUGS (6)
  1. ZOLPIDEM [Interacting]
     Active Substance: ZOLPIDEM TARTRATE
     Indication: Depressive symptom
     Dosage: 10 MILLIGRAM,PRESCRIBED DOSE
     Route: 065
  2. ZOLPIDEM [Interacting]
     Active Substance: ZOLPIDEM TARTRATE
     Dosage: UNK,ADMINISTERED FOR INTENTIONAL SELF-POISONING
     Route: 065
  3. AMITRIPTYLINE [Interacting]
     Active Substance: AMITRIPTYLINE
     Indication: Depressive symptom
     Dosage: 25 MILLIGRAM,PRESCRIBED DOSE
     Route: 065
  4. AMITRIPTYLINE [Interacting]
     Active Substance: AMITRIPTYLINE
     Dosage: UNK,ADMINISTERED FOR INTENTIONAL SELF-POISONING
     Route: 065
  5. BUSPIRONE [Interacting]
     Active Substance: BUSPIRONE HYDROCHLORIDE
     Indication: Depressive symptom
     Dosage: 5 MILLIGRAM,PRESCRIBED DOSE
     Route: 065
  6. BUSPIRONE [Interacting]
     Active Substance: BUSPIRONE HYDROCHLORIDE
     Dosage: UNK,ADMINISTERED FOR INTENTIONAL SELF-POISONING
     Route: 065

REACTIONS (6)
  - Poisoning deliberate [Recovering/Resolving]
  - Serotonin syndrome [Recovering/Resolving]
  - Drug interaction [Recovering/Resolving]
  - Hypoxia [Recovered/Resolved]
  - Hyperlactacidaemia [Unknown]
  - Respiratory failure [Recovered/Resolved]
